FAERS Safety Report 11680060 (Version 3)
Quarter: 2015Q4

REPORT INFORMATION
  Report Type: Spontaneous
  Country: US (occurrence: US)
  Receive Date: 20151027
  Receipt Date: 20151110
  Transmission Date: 20160304
  Serious: No
  Sender: FDA-Public Use
  Company Number: US-ELI_LILLY_AND_COMPANY-US201007005337

PATIENT
  Age: 75 Year
  Sex: Female

DRUGS (6)
  1. FORTEO [Suspect]
     Active Substance: TERIPARATIDE
     Indication: OSTEOPOROSIS
     Dosage: 20 UG, DAILY (1/D)
     Dates: start: 20100426
  2. FORTEO [Suspect]
     Active Substance: TERIPARATIDE
     Dosage: 20 UG, DAILY (1/D)
  3. FORTEO [Suspect]
     Active Substance: TERIPARATIDE
     Dosage: 20 UG, DAILY (1/D)
  4. FORTEO [Suspect]
     Active Substance: TERIPARATIDE
     Dosage: 20 UG, DAILY (1/D)
  5. FORTEO [Suspect]
     Active Substance: TERIPARATIDE
     Dosage: 20 UG, DAILY (1/D)
  6. ASPIRIN. [Concomitant]
     Active Substance: ASPIRIN
     Dosage: UNK, DAILY (1/D)

REACTIONS (10)
  - Injection site haemorrhage [Not Recovered/Not Resolved]
  - Myalgia [Recovering/Resolving]
  - Lower extremity mass [Unknown]
  - Contusion [Recovered/Resolved]
  - Dental discomfort [Unknown]
  - Pain in extremity [Recovering/Resolving]
  - Injection site bruising [Not Recovered/Not Resolved]
  - Movement disorder [Recovering/Resolving]
  - Arthralgia [Recovering/Resolving]
  - Dental caries [Unknown]

NARRATIVE: CASE EVENT DATE: 201102
